FAERS Safety Report 6260744-6 (Version None)
Quarter: 2009Q3

REPORT INFORMATION
  Report Type: 
  Country: None (occurrence: None)
  Receive Date: 20090708
  Receipt Date: 20090701
  Transmission Date: 20100115
  Serious: Yes (Hospitalization)
  Sender: FDA-Public Use
  Company Number: ES-MERCK-0907ESP00005

PATIENT
  Sex: Female

DRUGS (3)
  1. INVANZ [Suspect]
     Indication: PERITONITIS
     Route: 042
     Dates: start: 20090625, end: 20090627
  2. AMINO ACIDS (UNSPECIFIED) AND CARBOHYDRATES (UNSPECIFIED) AND ELECTROL [Suspect]
     Route: 065
  3. ANTIMICROBIAL (UNSPECIFIED) [Suspect]
     Indication: PYREXIA
     Route: 065
     Dates: start: 20090627

REACTIONS (4)
  - BLOOD AMYLASE INCREASED [None]
  - LIPASE INCREASED [None]
  - NAUSEA [None]
  - PULMONARY EMBOLISM [None]
